FAERS Safety Report 7282328-3 (Version None)
Quarter: 2011Q1

REPORT INFORMATION
  Report Type: 
  Country: None (occurrence: None)
  Receive Date: 20110209
  Receipt Date: 20110201
  Transmission Date: 20110831
  Serious: Yes (Other)
  Sender: FDA-Public Use
  Company Number: VE-PFIZER INC-2011023272

PATIENT
  Age: 47 Year
  Sex: Male

DRUGS (2)
  1. LIPITOR [Suspect]
     Indication: HYPERTRIGLYCERIDAEMIA
     Dosage: 40 MG, 1X/DAY
     Route: 048
     Dates: start: 20101201, end: 20110101
  2. VITAMIN E [Concomitant]
     Indication: HYPERCHOLESTEROLAEMIA
     Dosage: 500 MG, 1X/DAY
     Route: 048
     Dates: start: 20100101

REACTIONS (1)
  - VIITH NERVE PARALYSIS [None]
